FAERS Safety Report 5274594-0 (Version None)
Quarter: 2007Q1

REPORT INFORMATION
  Report Type: 
  Country: None (occurrence: None)
  Receive Date: 20070323
  Receipt Date: 20060908
  Transmission Date: 20070707
  Serious: Yes (Other)
  Sender: FDA-Public Use
  Company Number: US-PFIZER INC-2007022272

PATIENT

DRUGS (1)
  1. IRINOTECAN HCL [Suspect]

REACTIONS (1)
  - OBSTRUCTIVE AIRWAYS DISORDER [None]
